FAERS Safety Report 7132317-4 (Version None)
Quarter: 2010Q4

REPORT INFORMATION
  Report Type: 
  Country: None (occurrence: None)
  Receive Date: 20101202
  Receipt Date: 20101125
  Transmission Date: 20110411
  Serious: Yes (Death)
  Sender: FDA-Public Use
  Company Number: JP-GENZYME-THYM-1002131

PATIENT
  Age: 46 Year
  Sex: Female

DRUGS (1)
  1. THYMOGLOBULIN [Suspect]
     Indication: GRAFT VERSUS HOST DISEASE
     Dosage: 1.25 MG/KG, ONCE
     Route: 042
     Dates: start: 20101101, end: 20101101

REACTIONS (2)
  - GRAFT VERSUS HOST DISEASE [None]
  - THERAPEUTIC RESPONSE DECREASED [None]
